FAERS Safety Report 19448808 (Version 2)
Quarter: 2021Q3

REPORT INFORMATION
  Report Type: Other
  Country: DE (occurrence: DE)
  Receive Date: 20210622
  Receipt Date: 20210706
  Transmission Date: 20211014
  Serious: No
  Sender: FDA-Public Use
  Company Number: DE-ROCHE-2851624

PATIENT
  Sex: Female
  Weight: 79.4 kg

DRUGS (1)
  1. OCRELIZUMAB. [Suspect]
     Active Substance: OCRELIZUMAB
     Indication: RELAPSING-REMITTING MULTIPLE SCLEROSIS
     Route: 065
     Dates: start: 20180207

REACTIONS (3)
  - Fatigue [Unknown]
  - Dyspnoea [Unknown]
  - Nasal congestion [Unknown]
